FAERS Safety Report 17265441 (Version 2)
Quarter: 2020Q1

REPORT INFORMATION
  Report Type: Spontaneous
  Country: US (occurrence: US)
  Receive Date: 20200114
  Receipt Date: 20200117
  Transmission Date: 20200409
  Serious: Yes (Other)
  Sender: FDA-Public Use
  Company Number: US-BRISTOL-MYERS SQUIBB COMPANY-BMS-2020-002570

PATIENT
  Age: 70 Year
  Sex: Female
  Weight: 126 kg

DRUGS (1)
  1. ELIQUIS [Suspect]
     Active Substance: APIXABAN
     Indication: CEREBROVASCULAR ACCIDENT PROPHYLAXIS
     Dosage: 2.5 MILLIGRAM, BID
     Route: 065

REACTIONS (4)
  - Prescribed underdose [Unknown]
  - Deep vein thrombosis [Unknown]
  - Treatment noncompliance [Unknown]
  - Pulmonary embolism [Unknown]
